FAERS Safety Report 10142292 (Version 3)
Quarter: 2014Q2

REPORT INFORMATION
  Report Type: Report from Study
  Country: CA (occurrence: CA)
  Receive Date: 20140430
  Receipt Date: 20140502
  Transmission Date: 20141212
  Serious: Yes (Other)
  Sender: FDA-Public Use
  Company Number: CA-ROCHE-1304557

PATIENT
  Age: 70 Year
  Sex: Male
  Weight: 71.2 kg

DRUGS (10)
  1. RITUXAN [Suspect]
     Indication: RHEUMATOID ARTHRITIS
     Route: 042
     Dates: start: 20131113
  2. ACETAMINOPHEN [Concomitant]
     Route: 048
     Dates: start: 20131113
  3. METHYLPREDNISOLONE [Concomitant]
     Indication: PREMEDICATION
     Route: 042
     Dates: start: 20131113
  4. SYNTHROID [Concomitant]
  5. RANITIDINE [Concomitant]
     Route: 065
  6. OXYCOCET [Concomitant]
     Route: 065
  7. VALSARTAN COMP [Concomitant]
     Dosage: 180-12.5MG
     Route: 065
  8. TAMSULOSIN [Concomitant]
     Route: 065
  9. METHOTREXATE [Concomitant]
     Route: 065
  10. FOLIC ACID [Concomitant]

REACTIONS (2)
  - Depression [Unknown]
  - Feeling hot [Recovered/Resolved]
